FAERS Safety Report 7907597-5 (Version None)
Quarter: 2011Q4

REPORT INFORMATION
  Report Type: 
  Country: None (occurrence: None)
  Receive Date: 20111110
  Receipt Date: 20111108
  Transmission Date: 20120403
  Serious: Yes (Death, Other)
  Sender: FDA-Public Use
  Company Number: PHHY2011BR89351

PATIENT
  Age: 65 Year
  Sex: Male

DRUGS (1)
  1. DIOVAN [Suspect]
     Indication: HYPERTENSION
     Dosage: 160 MG, UNK

REACTIONS (5)
  - DEATH [None]
  - AMERICAN TRYPANOSOMIASIS [None]
  - CORONARY ARTERY OCCLUSION [None]
  - HYPERTENSION [None]
  - DENGUE FEVER [None]
